FAERS Safety Report 7241060-2 (Version None)
Quarter: 2011Q1

REPORT INFORMATION
  Report Type: 
  Country: None (occurrence: None)
  Receive Date: 20110124
  Receipt Date: 20110112
  Transmission Date: 20110831
  Serious: Yes (Hospitalization)
  Sender: FDA-Public Use
  Company Number: FR-PFIZER INC-2011014204

PATIENT
  Age: 73 Year
  Sex: Male

DRUGS (6)
  1. LASIX [Concomitant]
     Dosage: UNK
     Dates: start: 20090107
  2. ALLOPURINOL [Concomitant]
  3. CORDARONE [Suspect]
     Dosage: 200 MG, UNK
     Route: 048
     Dates: start: 20100215, end: 20100518
  4. PREVISCAN [Concomitant]
     Dosage: UNK
     Dates: start: 20090107
  5. LEVOTHYROX [Concomitant]
     Dosage: UNK
  6. KALEORID [Concomitant]

REACTIONS (1)
  - LEUKOCYTOCLASTIC VASCULITIS [None]
